FAERS Safety Report 9979500 (Version 2)
Quarter: 2014Q1

REPORT INFORMATION
  Report Type: Report from Study
  Country: US (occurrence: US)
  Receive Date: 20140306
  Receipt Date: 20140306
  Transmission Date: 20141002
  Serious: No
  Sender: FDA-Public Use
  Company Number: US-ABBVIE-13P-163-1154666-00

PATIENT
  Age: 20 Year
  Sex: Male

DRUGS (4)
  1. HUMIRA [Suspect]
     Indication: CROHN^S DISEASE
     Dosage: LOADING DOSE
     Dates: start: 20130926, end: 20130926
  2. HUMIRA [Suspect]
  3. METHOTREXATE [Concomitant]
     Indication: CROHN^S DISEASE
     Dosage: EVERY THURSDAY
     Route: 050
  4. IRON [Concomitant]
     Indication: PRODUCT USED FOR UNKNOWN INDICATION
     Dosage: EVERY TUESDAY X5 DOSES, 3RD DOSE REC^D 01 OCT 2013
     Route: 042

REACTIONS (2)
  - Injection site pain [Not Recovered/Not Resolved]
  - Injection site pain [Not Recovered/Not Resolved]
